FAERS Safety Report 5603185-4 (Version None)
Quarter: 2008Q1

REPORT INFORMATION
  Report Type: 
  Country: None (occurrence: None)
  Receive Date: 20080125
  Receipt Date: 20080114
  Transmission Date: 20080703
  Serious: Yes (Other)
  Sender: FDA-Public Use
  Company Number: US-PFIZER INC-2008004213

PATIENT
  Sex: Female
  Weight: 127.27 kg

DRUGS (10)
  1. TIKOSYN [Suspect]
     Indication: ATRIAL FIBRILLATION
  2. CARDIZEM [Suspect]
     Indication: ATRIAL FIBRILLATION
  3. CARDIZEM [Suspect]
  4. AMARYL [Concomitant]
  5. CORGARD [Concomitant]
  6. LISINOPRIL [Concomitant]
  7. ZETIA [Concomitant]
  8. BAYER WOMEN'S [Concomitant]
  9. OMEGA 3 [Concomitant]
  10. COUMADIN [Concomitant]

REACTIONS (5)
  - ATRIAL FIBRILLATION [None]
  - BLOOD GLUCOSE INCREASED [None]
  - DYSPHONIA [None]
  - URINARY TRACT DISORDER [None]
  - WEIGHT INCREASED [None]
